FAERS Safety Report 12994349 (Version 1)
Quarter: 2016Q4

REPORT INFORMATION
  Report Type: Spontaneous
  Country: DE (occurrence: DE)
  Receive Date: 20161202
  Receipt Date: 20161202
  Transmission Date: 20170207
  Serious: Yes (Other)
  Sender: FDA-Public Use
  Company Number: DE-TEVA-715584GER

PATIENT
  Age: 60 Year
  Sex: Male

DRUGS (4)
  1. GEMCITABINE [Suspect]
     Active Substance: GEMCITABINE\GEMCITABINE HYDROCHLORIDE
     Indication: MALIGNANT NEOPLASM OF AMPULLA OF VATER
     Dosage: FIRST CYCLE 1000MG/M2 ON DAYS 1,8,15,22,29,36,AND43; SECOND CYCLE ON DAYS 1,8,15, REPEATED ON DAY 29
     Route: 065
  2. FOLINIC ACID [Concomitant]
     Active Substance: LEUCOVORIN
     Indication: MALIGNANT NEOPLASM OF AMPULLA OF VATER
     Dosage: 400 MG/M2 (AS PART OF FOLFOX AND FOLFIRI REGIMEN)
     Route: 065
  3. TINZAPARIN SODIUM [Concomitant]
     Active Substance: TINZAPARIN SODIUM
     Indication: AXILLARY VEIN THROMBOSIS
     Dosage: 175 IU/KG
     Route: 065
  4. NANOPARTICLE ALBUMIN-BOUND PACLITAXEL [Suspect]
     Active Substance: PACLITAXEL
     Indication: MALIGNANT NEOPLASM OF AMPULLA OF VATER
     Dosage: FIRST CYCLE 125MG/M2 ON DAYS 1,8,15,22,29,36,AND43; SECOND CYCLE ON DAYS 1,8,15, REPEATED ON DAY 29
     Route: 065

REACTIONS (3)
  - Neutropenia [Unknown]
  - Administration site thrombosis [Unknown]
  - Fatigue [Unknown]
